FAERS Safety Report 25398253 (Version 1)
Quarter: 2025Q2

REPORT INFORMATION
  Report Type: Spontaneous
  Country: US (occurrence: US)
  Receive Date: 20250604
  Receipt Date: 20250604
  Transmission Date: 20250716
  Serious: No
  Sender: SANOFI AVENTIS
  Company Number: US-SA-2025SA157202

PATIENT
  Sex: Male

DRUGS (6)
  1. DUPIXENT [Suspect]
     Active Substance: DUPILUMAB
     Indication: Nasal polyps
     Dosage: 300 MG, QOW
     Route: 058
  2. FLUTICASONE [Concomitant]
     Active Substance: FLUTICASONE
  3. METAXALONE [Concomitant]
     Active Substance: METAXALONE
  4. OXYCODONE HYDROCHLORIDE [Concomitant]
     Active Substance: OXYCODONE HYDROCHLORIDE
  5. TRIAMCINOLONE [Concomitant]
     Active Substance: TRIAMCINOLONE
  6. ZENATANE [Concomitant]
     Active Substance: ISOTRETINOIN

REACTIONS (1)
  - Nasal congestion [Not Recovered/Not Resolved]
